FAERS Safety Report 6044157-8 (Version None)
Quarter: 2009Q1

REPORT INFORMATION
  Report Type: 
  Country: None (occurrence: None)
  Receive Date: 20090115
  Receipt Date: 20090115
  Transmission Date: 20090719
  Serious: Yes (Disabling)
  Sender: FDA-Public Use
  Company Number: None

PATIENT
  Sex: Female

DRUGS (5)
  1. AREDIA [Suspect]
     Indication: LYMPHOMA
     Dosage: 90 MG MONTHLY IV
     Route: 042
     Dates: start: 20061001, end: 20070101
  2. ZOMETA [Suspect]
     Dosage: 4 MG MONTHLY IV
     Route: 042
     Dates: start: 20070201, end: 20070301
  3. METHOTREXATE [Concomitant]
  4. CIPROFLOXACIN [Concomitant]
  5. CLINDAMYCIN HCL [Concomitant]

REACTIONS (8)
  - BONE DISORDER [None]
  - DENTAL ALVEOLAR ANOMALY [None]
  - FISTULA DISCHARGE [None]
  - IMPAIRED HEALING [None]
  - OEDEMA MOUTH [None]
  - OEDEMA MUCOSAL [None]
  - ORAL PAIN [None]
  - OSTEOSCLEROSIS [None]
